FAERS Safety Report 7588215-5 (Version None)
Quarter: 2011Q2

REPORT INFORMATION
  Report Type: 
  Country: None (occurrence: None)
  Receive Date: 20110627
  Receipt Date: 20110620
  Transmission Date: 20111010
  Serious: Yes (Death)
  Sender: FDA-Public Use
  Company Number: DSA_46968_2011

PATIENT
  Sex: Male
  Weight: 66.6788 kg

DRUGS (1)
  1. XENAZINE [Suspect]
     Indication: PRODUCT USED FOR UNKNOWN INDICATION
     Dosage: (25 MG BID ORAL)
     Route: 048
     Dates: start: 20100207, end: 20110617

REACTIONS (1)
  - DEATH [None]
